FAERS Safety Report 10192361 (Version 3)
Quarter: 2014Q2

REPORT INFORMATION
  Report Type: Spontaneous
  Country: US (occurrence: US)
  Receive Date: 20140523
  Receipt Date: 20140602
  Transmission Date: 20141212
  Serious: No
  Sender: FDA-Public Use
  Company Number: US-BAYER-2014-076930

PATIENT
  Age: 44 Year
  Sex: Female

DRUGS (2)
  1. CLIMARA [Suspect]
     Indication: HORMONE REPLACEMENT THERAPY
     Dosage: UNK
     Route: 062
     Dates: start: 2004
  2. CLIMARA [Suspect]
     Indication: HEADACHE

REACTIONS (6)
  - Product adhesion issue [None]
  - Application site irritation [Not Recovered/Not Resolved]
  - Application site erythema [Not Recovered/Not Resolved]
  - Application site rash [Recovered/Resolved]
  - Inappropriate schedule of drug administration [None]
  - Therapeutic response changed [None]
